FAERS Safety Report 7692705-4 (Version None)
Quarter: 2011Q3

REPORT INFORMATION
  Report Type: 
  Country: None (occurrence: None)
  Receive Date: 20110819
  Receipt Date: 20110816
  Transmission Date: 20111222
  Serious: Yes (Other)
  Sender: FDA-Public Use
  Company Number: US-PFIZER INC-2008025235

PATIENT
  Sex: Female
  Weight: 68.9 kg

DRUGS (8)
  1. LYRICA [Suspect]
     Indication: NEUROPATHY PERIPHERAL
     Dosage: EVERY OTHER DAY.
     Route: 048
  2. LYRICA [Suspect]
     Dosage: 25 MG DAILY
     Route: 048
     Dates: start: 20110407
  3. LIDOCAINE [Suspect]
     Indication: NEUROPATHY PERIPHERAL
     Dosage: UNK
     Route: 062
  4. CAPSAICIN [Suspect]
     Indication: NEUROPATHY PERIPHERAL
     Dosage: UNK
  5. TOPROL-XL [Concomitant]
     Dosage: UNK
     Route: 048
  6. OXYBUTYNIN [Suspect]
     Dosage: UNK
  7. CYMBALTA [Suspect]
     Indication: NEUROPATHY PERIPHERAL
     Dosage: UNK
     Route: 048
  8. ATENOLOL [Suspect]
     Dosage: UNK
     Route: 048

REACTIONS (11)
  - DIZZINESS [None]
  - GAIT DISTURBANCE [None]
  - ANXIETY [None]
  - MYALGIA [None]
  - ABDOMINAL PAIN UPPER [None]
  - SOMNOLENCE [None]
  - FATIGUE [None]
  - PAIN [None]
  - DRUG INEFFECTIVE [None]
  - ATAXIA [None]
  - INSOMNIA [None]
